FAERS Safety Report 5169059-0 (Version None)
Quarter: 2006Q4

REPORT INFORMATION
  Report Type: 
  Country: None (occurrence: None)
  Receive Date: 20061204
  Receipt Date: 20061122
  Transmission Date: 20070319
  Serious: Yes (Other)
  Sender: FDA-Public Use
  Company Number: 2006144958

PATIENT
  Age: 40 Year
  Sex: Female

DRUGS (1)
  1. DEPO-PROVERA [Suspect]
     Dosage: FIRST INJECTION, INTRAMUSCULAR; LAST INJECTION, INTRAMUSCULAR
     Route: 030
     Dates: start: 19930101, end: 19930101

REACTIONS (2)
  - FOOT FRACTURE [None]
  - OSTEOPOROSIS [None]
